FAERS Safety Report 4646610-8 (Version None)
Quarter: 2005Q2

REPORT INFORMATION
  Report Type: 
  Country: None (occurrence: None)
  Receive Date: 20050427
  Receipt Date: 20050201
  Transmission Date: 20051028
  Serious: No
  Sender: FDA-Public Use
  Company Number: US-GLAXOSMITHKLINE-A0543484A

PATIENT
  Age: 34 Month
  Sex: Male
  Weight: 15.9 kg

DRUGS (2)
  1. FLOVENT [Suspect]
     Indication: ILL-DEFINED DISORDER
     Dosage: 44MCG TWICE PER DAY
     Route: 055
     Dates: start: 20041228
  2. ALBUTEROL [Concomitant]
     Route: 055

REACTIONS (1)
  - TOOTH DISCOLOURATION [None]
